FAERS Safety Report 24177580 (Version 1)
Quarter: 2024Q3

REPORT INFORMATION
  Report Type: Spontaneous
  Country: US (occurrence: None)
  Receive Date: 20240805
  Receipt Date: 20240805
  Transmission Date: 20241016
  Serious: No
  Sender: Public
  Company Number: None

PATIENT

DRUGS (2)
  1. METOPROLOL SUCCINATE [Suspect]
     Active Substance: METOPROLOL SUCCINATE
     Dosage: TABLET, EXTENDED RELEASE ORAL
     Route: 048
  2. METOPROLOL SUCCINATE [Suspect]
     Active Substance: METOPROLOL SUCCINATE
     Dosage: TABLET, EXTENDED RELEASE ORAL
     Route: 048

REACTIONS (3)
  - Product label confusion [None]
  - Product commingling [None]
  - Product packaging confusion [None]
